FAERS Safety Report 7525836-X (Version None)
Quarter: 2011Q2

REPORT INFORMATION
  Report Type: 
  Country: None (occurrence: None)
  Receive Date: 20110606
  Receipt Date: 20110603
  Transmission Date: 20111010
  Serious: Yes (Death)
  Sender: FDA-Public Use
  Company Number: A0789879A

PATIENT
  Age: 48 Year
  Sex: Male

DRUGS (5)
  1. LISINOPRIL [Concomitant]
  2. LEVEMIR [Concomitant]
     Dates: start: 20070523
  3. GLUCOTROL [Concomitant]
  4. METFORMIN HCL [Concomitant]
     Dates: end: 20070523
  5. AVANDIA [Suspect]
     Dosage: 4MG PER DAY
     Route: 048
     Dates: start: 20060101, end: 20070601

REACTIONS (2)
  - MYOCARDIAL INFARCTION [None]
  - MYOCARDIAL ISCHAEMIA [None]
